FAERS Safety Report 5163697-7 (Version None)
Quarter: 2006Q4

REPORT INFORMATION
  Report Type: 
  Country: None (occurrence: None)
  Receive Date: 20061204
  Receipt Date: 20011106
  Transmission Date: 20070319
  Serious: Yes (Disabling)
  Sender: FDA-Public Use
  Company Number: FR-GLAXOSMITHKLINE-B0126109A

PATIENT
  Age: 1 Day
  Sex: Male

DRUGS (5)
  1. ZIDOVUDINE [Suspect]
     Indication: ANTIVIRAL PROPHYLAXIS
     Dosage: 32MG PER DAY
     Route: 048
     Dates: start: 20010128, end: 20010311
  2. ZIDOVUDINE [Suspect]
     Indication: HIV INFECTION
     Route: 048
     Dates: start: 20001128, end: 20010128
  3. ZIDOVUDINE [Suspect]
     Route: 042
     Dates: start: 20010128, end: 20010128
  4. DIDANOSINE [Suspect]
     Indication: HIV INFECTION
     Route: 048
  5. STAVUDINE [Suspect]
     Indication: HIV INFECTION
     Route: 048

REACTIONS (14)
  - ATRIAL SEPTAL DEFECT [None]
  - BLOOD LACTIC ACID INCREASED [None]
  - BLOOD PYRUVIC ACID DECREASED [None]
  - CARDIOMYOPATHY [None]
  - COARCTATION OF THE AORTA [None]
  - DRUG EXPOSURE DURING PREGNANCY [None]
  - EYE DISORDER [None]
  - HEART DISEASE CONGENITAL [None]
  - HYPERTONIA [None]
  - HYPOACUSIS [None]
  - HYPOTONIA [None]
  - PSYCHOMOTOR SKILLS IMPAIRED [None]
  - VENTRICULAR SEPTAL DEFECT [None]
  - VISUAL DISTURBANCE [None]
